FAERS Safety Report 25485529 (Version 2)
Quarter: 2025Q3

REPORT INFORMATION
  Report Type: Spontaneous
  Country: US (occurrence: US)
  Receive Date: 20250626
  Receipt Date: 20250717
  Transmission Date: 20251021
  Serious: No
  Sender: BIOGEN
  Company Number: US-BIOGEN-2025BI01315279

PATIENT
  Sex: Female

DRUGS (5)
  1. VUMERITY [Suspect]
     Active Substance: DIROXIMEL FUMARATE
     Indication: Multiple sclerosis
     Dosage: TAKE 2 CAPSULES (462 MG) BY MOUTH TWO TIMES DAILY
     Route: 050
     Dates: start: 20240517
  2. GABAPENTIN [Concomitant]
     Active Substance: GABAPENTIN
     Route: 050
  3. ACYCLOVIR [Concomitant]
     Active Substance: ACYCLOVIR
     Route: 050
  4. SYNTHROID [Concomitant]
     Active Substance: LEVOTHYROXINE SODIUM
     Route: 050
  5. VITAMIN D [Concomitant]
     Active Substance: VITAMIN D NOS
     Route: 050

REACTIONS (2)
  - Irritability [Unknown]
  - Flushing [Unknown]
